FAERS Safety Report 8335202-5 (Version None)
Quarter: 2012Q2

REPORT INFORMATION
  Report Type: 
  Country: None (occurrence: None)
  Receive Date: 20120503
  Receipt Date: 20120427
  Transmission Date: 20120825
  Serious: Yes (Hospitalization)
  Sender: FDA-Public Use
  Company Number: PH-JNJFOC-20080700138

PATIENT
  Sex: Female
  Weight: 64 kg

DRUGS (42)
  1. GOLIMUMAB [Suspect]
     Indication: RHEUMATOID ARTHRITIS
     Route: 058
     Dates: start: 20071023
  2. GOLIMUMAB [Suspect]
     Route: 058
     Dates: start: 20080416
  3. METHOTREXATE [Suspect]
     Route: 048
     Dates: start: 20060906, end: 20060906
  4. FOLIC ACID [Concomitant]
     Route: 048
     Dates: start: 20071024
  5. DIOVAN [Concomitant]
  6. GOLIMUMAB [Suspect]
     Route: 058
     Dates: start: 20070802
  7. GOLIMUMAB [Suspect]
     Route: 058
     Dates: start: 20070702
  8. DIAMICRON MR [Concomitant]
     Route: 048
     Dates: start: 20061126
  9. GOLIMUMAB [Suspect]
     Route: 058
     Dates: start: 20071220
  10. GOLIMUMAB [Suspect]
     Route: 058
     Dates: start: 20070925
  11. METHOTREXATE [Suspect]
     Indication: RHEUMATOID ARTHRITIS
     Route: 048
     Dates: start: 20070307, end: 20070821
  12. CALCI-ACID [Concomitant]
     Route: 048
     Dates: start: 20070605
  13. LIPITOR [Concomitant]
     Route: 048
     Dates: start: 20070605
  14. GOLIMUMAB [Suspect]
     Route: 058
     Dates: start: 20080115
  15. GOLIMUMAB [Suspect]
     Route: 058
     Dates: start: 20080215
  16. GOLIMUMAB [Suspect]
     Route: 058
     Dates: start: 20080326
  17. GOLIMUMAB [Suspect]
     Route: 058
     Dates: start: 20080604
  18. GOLIMUMAB [Suspect]
     Route: 058
     Dates: start: 20060920
  19. GOLIMUMAB [Suspect]
     Route: 058
     Dates: start: 20070306
  20. METHOTREXATE [Suspect]
     Route: 048
     Dates: start: 20060823, end: 20060830
  21. METHOTREXATE [Concomitant]
     Route: 048
     Dates: start: 20080623
  22. TRAMADOL HYDROCHLORIDE AND ACETAMINOPHEN [Concomitant]
     Route: 048
     Dates: start: 20060206
  23. PREDNISONE TAB [Concomitant]
     Route: 048
  24. GOLIMUMAB [Suspect]
     Route: 058
     Dates: start: 20060823
  25. METHOTREXATE [Suspect]
     Route: 048
     Dates: start: 20060913, end: 20060920
  26. GOLIMUMAB [Suspect]
     Route: 058
     Dates: start: 20080505
  27. GOLIMUMAB [Suspect]
     Route: 058
     Dates: start: 20070605
  28. METHOTREXATE [Suspect]
     Route: 048
     Dates: start: 20061011, end: 20070228
  29. GOLIMUMAB [Suspect]
     Route: 058
     Dates: start: 20061115
  30. GOLIMUMAB [Suspect]
     Route: 058
     Dates: start: 20070904
  31. GOLIMUMAB [Suspect]
     Route: 058
     Dates: start: 20070403
  32. METHOTREXATE [Concomitant]
     Route: 048
     Dates: start: 20080126, end: 20080616
  33. LIFEZAAR [Concomitant]
     Route: 048
     Dates: start: 20070407
  34. GOLIMUMAB [Suspect]
     Route: 058
     Dates: start: 20071129
  35. GOLIMUMAB [Suspect]
     Route: 058
     Dates: start: 20070206
  36. GOLIMUMAB [Suspect]
     Route: 058
     Dates: start: 20070109
  37. GOLIMUMAB [Suspect]
     Route: 058
     Dates: start: 20061213
  38. GOLIMUMAB [Suspect]
     Route: 058
     Dates: start: 20061017
  39. GOLIMUMAB [Suspect]
     Route: 058
     Dates: start: 20070508
  40. METHOTREXATE [Suspect]
     Route: 048
     Dates: start: 20060927, end: 20061004
  41. METHOTREXATE [Concomitant]
     Route: 048
     Dates: start: 20070828, end: 20071219
  42. BONIVA [Concomitant]
     Route: 048
     Dates: start: 20080515

REACTIONS (1)
  - PULMONARY TUBERCULOSIS [None]
